FAERS Safety Report 18217601 (Version 6)
Quarter: 2024Q2

REPORT INFORMATION
  Report Type: Report from Study
  Country: JP (occurrence: JP)
  Receive Date: 20200901
  Receipt Date: 20240617
  Transmission Date: 20240715
  Serious: Yes (Other)
  Sender: FDA-Public Use
  Company Number: JP-MTPC-MTPC2020-0061624

PATIENT
  Age: 48 Year
  Sex: Male

DRUGS (1)
  1. CANAGLIFLOZIN [Suspect]
     Active Substance: CANAGLIFLOZIN
     Indication: Product used for unknown indication
     Dosage: 100 MILLIGRAM, QD
     Route: 048
     Dates: start: 20200514, end: 20210520

REACTIONS (5)
  - Erythema multiforme [Recovered/Resolved]
  - Nasopharyngitis [Recovered/Resolved]
  - Dyshidrotic eczema [Recovered/Resolved]
  - Enteritis infectious [Recovered/Resolved]
  - Dizziness [Recovered/Resolved]

NARRATIVE: CASE EVENT DATE: 20200515
